FAERS Safety Report 9974818 (Version 1)
Quarter: 2014Q1

REPORT INFORMATION
  Report Type: Report from Study
  Country: US (occurrence: US)
  Receive Date: 20140306
  Receipt Date: 20140306
  Transmission Date: 20141002
  Serious: No
  Sender: FDA-Public Use
  Company Number: US-ABBVIE-13P-163-1156794-00

PATIENT
  Sex: Male
  Weight: 80.81 kg

DRUGS (1)
  1. HUMIRA [Suspect]
     Indication: RHEUMATOID ARTHRITIS
     Route: 058
     Dates: start: 20130715, end: 20130805

REACTIONS (3)
  - Dizziness [Recovering/Resolving]
  - Dyspnoea [Recovering/Resolving]
  - Dysphonia [Recovering/Resolving]
